FAERS Safety Report 7274725-7 (Version None)
Quarter: 2011Q1

REPORT INFORMATION
  Report Type: 
  Country: None (occurrence: None)
  Receive Date: 20110204
  Receipt Date: 20110124
  Transmission Date: 20110831
  Serious: Yes (Hospitalization, Other)
  Sender: FDA-Public Use
  Company Number: US-ELI_LILLY_AND_COMPANY-US200909003620

PATIENT
  Sex: Female

DRUGS (7)
  1. LEVOTHYROXINE [Concomitant]
  2. FORTEO [Suspect]
     Indication: OSTEOPOROSIS
     Dosage: 20 UG, DAILY (1/D)
     Route: 065
     Dates: start: 20090608
  3. SIMVASTATIN [Concomitant]
  4. CALCIUM [Concomitant]
  5. ASPIRIN [Concomitant]
  6. METOPROLOL [Concomitant]
  7. LISINOPRIL [Concomitant]

REACTIONS (7)
  - FALL [None]
  - WRIST FRACTURE [None]
  - UPPER LIMB FRACTURE [None]
  - SURGERY [None]
  - TOOTH INJURY [None]
  - ARTHRALGIA [None]
  - HOSPITALISATION [None]
